FAERS Safety Report 17805191 (Version 3)
Quarter: 2020Q2

REPORT INFORMATION
  Report Type: Spontaneous
  Country: CN (occurrence: CN)
  Receive Date: 20200519
  Receipt Date: 20200615
  Transmission Date: 20200714
  Serious: Yes (Other)
  Sender: FDA-Public Use
  Company Number: CN-NOVOPROD-727747

PATIENT
  Age: 55 Year
  Sex: Male
  Weight: 67.5 kg

DRUGS (3)
  1. NOVORAPID [Suspect]
     Active Substance: INSULIN ASPART
     Dosage: INCREASED DOSE
     Route: 058
     Dates: end: 20200509
  2. NOVORAPID [Suspect]
     Active Substance: INSULIN ASPART
     Indication: TYPE 2 DIABETES MELLITUS
     Dosage: UNK
     Route: 058
     Dates: start: 20200506
  3. NOVORAPID [Suspect]
     Active Substance: INSULIN ASPART
     Dosage: 40 IU, QD
     Route: 058
     Dates: start: 20200506, end: 20200509

REACTIONS (5)
  - Wrong technique in product usage process [Unknown]
  - Diabetic ketoacidosis [Recovered/Resolved]
  - Product storage error [Unknown]
  - Drug ineffective [Unknown]
  - Injection site infection [Recovered/Resolved]

NARRATIVE: CASE EVENT DATE: 20200506
